FAERS Safety Report 24533930 (Version 1)
Quarter: 2024Q4

REPORT INFORMATION
  Report Type: Spontaneous
  Country: FR (occurrence: FR)
  Receive Date: 20241022
  Receipt Date: 20241022
  Transmission Date: 20250115
  Serious: Yes (Hospitalization)
  Sender: SANDOZ
  Company Number: FR-002147023-PHHY2019FR176045

PATIENT
  Age: 91 Year
  Sex: Female
  Weight: 47.6 kg

DRUGS (5)
  1. BETAXOLOL HYDROCHLORIDE [Suspect]
     Active Substance: BETAXOLOL HYDROCHLORIDE
     Indication: Hypertension
     Dosage: 20 MG, QD
     Route: 048
     Dates: end: 20181029
  2. CANDESARTAN CILEXETIL [Suspect]
     Active Substance: CANDESARTAN CILEXETIL
     Indication: Hypertension
     Dosage: 8 MG, QD
     Route: 048
  3. DOXYLAMINE SUCCINATE [Suspect]
     Active Substance: DOXYLAMINE SUCCINATE
     Indication: Insomnia
     Dosage: 1 DF, QD
     Route: 048
     Dates: end: 20181028
  4. NICARDIPINE HYDROCHLORIDE [Suspect]
     Active Substance: NICARDIPINE HYDROCHLORIDE
     Indication: Hypertension
     Dosage: 2 DF, QD
     Route: 048
     Dates: end: 20181029
  5. TRAMADOL HYDROCHLORIDE [Suspect]
     Active Substance: TRAMADOL HYDROCHLORIDE
     Indication: Product used for unknown indication
     Dosage: UNK
     Route: 048

REACTIONS (2)
  - Fall [Recovered/Resolved]
  - Malaise [Recovered/Resolved]

NARRATIVE: CASE EVENT DATE: 20181001
